FAERS Safety Report 20828110 (Version 2)
Quarter: 2022Q3

REPORT INFORMATION
  Report Type: Spontaneous
  Country: US (occurrence: US)
  Receive Date: 20220513
  Receipt Date: 20220716
  Transmission Date: 20221026
  Serious: No
  Sender: FDA-Public Use
  Company Number: US-SA-2022SA166987

PATIENT
  Sex: Female

DRUGS (2)
  1. LOVENOX [Suspect]
     Active Substance: ENOXAPARIN SODIUM
     Indication: Abortion spontaneous
     Dosage: UNK UNK, QD
  2. LOVENOX [Suspect]
     Active Substance: ENOXAPARIN SODIUM
     Indication: Abortion spontaneous

REACTIONS (4)
  - Injection site pain [Not Recovered/Not Resolved]
  - Injection site bruising [Unknown]
  - Needle issue [Unknown]
  - Product use in unapproved indication [Unknown]
